FAERS Safety Report 6157679-6 (Version None)
Quarter: 2009Q2

REPORT INFORMATION
  Report Type: 
  Country: None (occurrence: None)
  Receive Date: 20090416
  Receipt Date: 20090401
  Transmission Date: 20091009
  Serious: Yes (Other)
  Sender: FDA-Public Use
  Company Number: FR-GENENTECH-275635

PATIENT
  Age: 50 Year
  Sex: Male

DRUGS (6)
  1. AVASTIN [Suspect]
     Indication: GASTROINTESTINAL CARCINOMA
     Dosage: UNK
     Route: 065
  2. ELOXATIN [Suspect]
     Indication: GASTROINTESTINAL CARCINOMA
     Dosage: UNK
     Route: 065
  3. FLUOROURACIL [Concomitant]
     Indication: GASTROINTESTINAL CARCINOMA
     Dosage: UNK
  4. FOLINIC ACID [Concomitant]
     Indication: GASTROINTESTINAL CARCINOMA
     Dosage: UNK
  5. IRINOTECAN HCL [Concomitant]
     Indication: GASTROINTESTINAL CARCINOMA
     Dosage: UNK
  6. AMOXICILLIN [Concomitant]
     Indication: TOOTH ABSCESS
     Dosage: UNK

REACTIONS (3)
  - ERYTHEMA [None]
  - OXYGEN SATURATION DECREASED [None]
  - UNEVALUABLE EVENT [None]
